FAERS Safety Report 8302792-8 (Version None)
Quarter: 2012Q2

REPORT INFORMATION
  Report Type: 
  Country: None (occurrence: None)
  Receive Date: 20120420
  Receipt Date: 20120410
  Transmission Date: 20120825
  Serious: Yes (Death, Hospitalization, Other)
  Sender: FDA-Public Use
  Company Number: US-BAYER-2012-020547

PATIENT
  Age: 83 Year
  Sex: Female
  Weight: 67.59 kg

DRUGS (4)
  1. XARELTO [Interacting]
     Indication: CEREBROVASCULAR ACCIDENT PROPHYLAXIS
     Dosage: UNK
     Route: 048
     Dates: start: 20120221, end: 20120222
  2. ASPIRIN [Interacting]
     Dates: start: 20120221, end: 20120222
  3. XARELTO [Interacting]
     Indication: ATRIAL FIBRILLATION
  4. PLAVIX [Suspect]
     Dosage: 75 MG, HS
     Dates: start: 20120218, end: 20120221

REACTIONS (1)
  - LARGE INTESTINAL HAEMORRHAGE [None]
